FAERS Safety Report 4773731-1 (Version None)
Quarter: 2005Q3

REPORT INFORMATION
  Report Type: 
  Country: None (occurrence: None)
  Receive Date: 20050920
  Receipt Date: 20050908
  Transmission Date: 20060218
  Serious: Yes (Other)
  Sender: FDA-Public Use
  Company Number: US-GLAXOSMITHKLINE-A0573440A

PATIENT
  Age: 67 Year
  Sex: Female
  Weight: 79 kg

DRUGS (6)
  1. TEMOVATE TOPICAL GEL [Suspect]
     Indication: PSORIASIS
     Route: 061
     Dates: start: 20020101
  2. SYNTHROID [Concomitant]
     Indication: HYPOTHYROIDISM
     Route: 048
  3. COLACE [Concomitant]
     Indication: DIARRHOEA
     Route: 048
  4. MEGA WOMEN VITAMINS [Concomitant]
     Indication: VITAMIN SUPPLEMENTATION
     Route: 048
  5. OS-CAL ULTRA 600 PLUS [Concomitant]
     Indication: NUTRITIONAL SUPPORT
     Route: 048
  6. TOPICAL STEROID [Concomitant]
     Indication: PSORIASIS
     Route: 061
     Dates: end: 20050301

REACTIONS (5)
  - CONTUSION [None]
  - HAEMORRHAGE SUBCUTANEOUS [None]
  - SKIN ATROPHY [None]
  - SKIN EXFOLIATION [None]
  - VASCULAR INJURY [None]
